FAERS Safety Report 8131372-2 (Version None)
Quarter: 2012Q1

REPORT INFORMATION
  Report Type: 
  Country: None (occurrence: None)
  Receive Date: 20120213
  Receipt Date: 20120206
  Transmission Date: 20120608
  Serious: Yes (Hospitalization)
  Sender: FDA-Public Use
  Company Number: US-AMGEN-USASP2012007871

PATIENT
  Age: 59 Year
  Sex: Female

DRUGS (2)
  1. ENBREL [Suspect]
     Indication: RHEUMATOID ARTHRITIS
     Dosage: 50 MG, QWK
     Dates: start: 20100501
  2. TREXALL [Concomitant]
     Dosage: 1 MG, UNK
     Dates: start: 19900901

REACTIONS (8)
  - ARTHRALGIA [None]
  - CARPAL TUNNEL SYNDROME [None]
  - NEURALGIA [None]
  - RHEUMATOID ARTHRITIS [None]
  - INJECTION SITE ERYTHEMA [None]
  - INJECTION SITE PAIN [None]
  - KNEE ARTHROPLASTY [None]
  - FOOT DEFORMITY [None]
